FAERS Safety Report 23470798 (Version 1)
Quarter: 2024Q1

REPORT INFORMATION
  Report Type: Spontaneous
  Country: DE (occurrence: DE)
  Receive Date: 20240202
  Receipt Date: 20240202
  Transmission Date: 20240410
  Serious: Yes (Other)
  Sender: FDA-Public Use
  Company Number: None

PATIENT
  Age: 61 Year
  Sex: Female

DRUGS (2)
  1. VOLTAREN [Interacting]
     Active Substance: DICLOFENAC SODIUM
     Indication: Eye pain
     Dosage: UNK (4-5 X AM TAG)
     Dates: start: 20231001, end: 20231003
  2. ROPINIROLE HYDROCHLORIDE [Interacting]
     Active Substance: ROPINIROLE HYDROCHLORIDE
     Indication: Restless legs syndrome
     Dosage: 4 MG, QD (DAUERHAFTE EINNAHME 1X ABENDS)
     Route: 048

REACTIONS (8)
  - Suicidal ideation [Recovering/Resolving]
  - Hallucination [Recovering/Resolving]
  - Depression [Recovering/Resolving]
  - Drug interaction [Unknown]
  - Restlessness [Recovering/Resolving]
  - Impulse-control disorder [Recovering/Resolving]
  - Anxiety [Recovering/Resolving]
  - Panic attack [Recovering/Resolving]

NARRATIVE: CASE EVENT DATE: 20231001
